FAERS Safety Report 21002219 (Version 3)
Quarter: 2022Q3

REPORT INFORMATION
  Report Type: Report from Study
  Country: US (occurrence: US)
  Receive Date: 20220624
  Receipt Date: 20220706
  Transmission Date: 20221027
  Serious: Yes (Other)
  Sender: FDA-Public Use
  Company Number: US-UNITED THERAPEUTICS-UNT-2022-013273

PATIENT
  Age: 50 Year
  Sex: Female
  Weight: 144.67 kg

DRUGS (8)
  1. TREPROSTINIL SODIUM [Suspect]
     Active Substance: TREPROSTINIL SODIUM
     Indication: Pulmonary arterial hypertension
     Dosage: UNK, CONTINUING
     Route: 041
     Dates: start: 20220601, end: 202206
  2. TREPROSTINIL SODIUM [Suspect]
     Active Substance: TREPROSTINIL SODIUM
     Dosage: 0.024 ?G/KG, CONTINUING
     Route: 041
     Dates: start: 202206, end: 202206
  3. TREPROSTINIL SODIUM [Suspect]
     Active Substance: TREPROSTINIL SODIUM
     Dosage: 0.025 ?G/KG, CONTINUING
     Route: 041
     Dates: start: 20220608, end: 202206
  4. TREPROSTINIL SODIUM [Suspect]
     Active Substance: TREPROSTINIL SODIUM
     Dosage: 0.026 ?G/KG, CONTINUING
     Route: 041
     Dates: start: 20220614, end: 202206
  5. TREPROSTINIL SODIUM [Suspect]
     Active Substance: TREPROSTINIL SODIUM
     Dosage: 0.027 ?G/KG, CONTINUING
     Route: 041
     Dates: start: 202206, end: 20220626
  6. TREPROSTINIL SODIUM [Suspect]
     Active Substance: TREPROSTINIL SODIUM
     Dosage: 0.028 ?G/KG, CONTINUING
     Route: 041
     Dates: start: 20220626
  7. AMBRISENTAN [Concomitant]
     Active Substance: AMBRISENTAN
     Indication: Product used for unknown indication
     Dosage: UNK
     Route: 065
  8. SILDENAFIL [Concomitant]
     Active Substance: SILDENAFIL
     Indication: Product used for unknown indication
     Dosage: UNK
     Route: 065

REACTIONS (7)
  - Renal impairment [Unknown]
  - Fluid retention [Unknown]
  - Pain in extremity [Unknown]
  - Weight increased [Not Recovered/Not Resolved]
  - Nausea [Unknown]
  - Fatigue [Unknown]
  - Decreased appetite [Unknown]

NARRATIVE: CASE EVENT DATE: 20220601
